FAERS Safety Report 6143039-0 (Version None)
Quarter: 2009Q2

REPORT INFORMATION
  Report Type: 
  Country: None (occurrence: None)
  Receive Date: 20090403
  Receipt Date: 20090401
  Transmission Date: 20091009
  Serious: Yes (Death)
  Sender: FDA-Public Use
  Company Number: FR-EISAI MEDICAL RESEARCH-E7867-00034-SPO-FR

PATIENT
  Age: 44 Year

DRUGS (1)
  1. GLIADEL [Suspect]
     Indication: MIXED OLIGO-ASTROCYTOMA
     Route: 018
     Dates: start: 20090128

REACTIONS (1)
  - MENINGITIS [None]
